FAERS Safety Report 24585742 (Version 3)
Quarter: 2025Q1

REPORT INFORMATION
  Report Type: Spontaneous
  Country: US (occurrence: US)
  Receive Date: 20241106
  Receipt Date: 20250131
  Transmission Date: 20250409
  Serious: Yes (Other)
  Sender: PFIZER
  Company Number: US-PFIZER INC-PV202400143165

PATIENT
  Age: 52 Year
  Sex: Male

DRUGS (3)
  1. BOSULIF [Suspect]
     Active Substance: BOSUTINIB MONOHYDRATE
     Indication: Chronic myeloid leukaemia recurrent
     Dosage: 400 MG, 1X/DAY (ONCE DAILY, WITH FOOD)
     Route: 048
  2. BOSULIF [Suspect]
     Active Substance: BOSUTINIB MONOHYDRATE
     Indication: Thrombocytopenia
     Dosage: 300 MG, 1X/DAY (ONCE DAILY, WITH FOOD)
     Route: 048
  3. BOSULIF [Suspect]
     Active Substance: BOSUTINIB MONOHYDRATE
     Indication: Anaemia
     Dosage: TAKE 1 TABLET DAILY WITH FOOD
     Route: 048

REACTIONS (2)
  - Blindness [Unknown]
  - Anaemia [Unknown]
